FAERS Safety Report 4602216-8 (Version None)
Quarter: 2005Q1

REPORT INFORMATION
  Report Type: 
  Country: None (occurrence: None)
  Receive Date: 20050201
  Receipt Date: 20041029
  Transmission Date: 20050727
  Serious: Yes (Other)
  Sender: FDA-Public Use
  Company Number: 200420918BWH

PATIENT
  Age: 18 Year
  Sex: Female

DRUGS (3)
  1. AVELOX [Suspect]
     Indication: SINUSITIS
     Dosage: 400 MG, ONCE, ORAL
     Route: 048
     Dates: start: 20041023
  2. AVELOX [Suspect]
     Indication: SINUSITIS
     Dosage: 400 MG, ONCE, ORAL
     Route: 048
     Dates: start: 20041025
  3. LEVAQUIN [Concomitant]

REACTIONS (5)
  - ABNORMAL BEHAVIOUR [None]
  - HEADACHE [None]
  - NAUSEA [None]
  - PARANOIA [None]
  - VOMITING [None]
